FAERS Safety Report 8034350-7 (Version None)
Quarter: 2012Q1

REPORT INFORMATION
  Report Type: 
  Country: None (occurrence: None)
  Receive Date: 20120110
  Receipt Date: 20120104
  Transmission Date: 20120608
  Serious: Yes (Hospitalization, Other)
  Sender: FDA-Public Use
  Company Number: US-ABBOTT-12P-163-0889196-00

PATIENT
  Sex: Male
  Weight: 57.7 kg

DRUGS (14)
  1. ENALAPRIL MALEATE [Concomitant]
     Indication: PRODUCT USED FOR UNKNOWN INDICATION
     Dates: start: 20111128
  2. ASACOL [Concomitant]
     Indication: PRODUCT USED FOR UNKNOWN INDICATION
     Dates: start: 20101101
  3. FOLIC ACID [Concomitant]
     Indication: PRODUCT USED FOR UNKNOWN INDICATION
     Dates: start: 20101201
  4. RECLAST [Concomitant]
     Indication: PRODUCT USED FOR UNKNOWN INDICATION
     Dates: start: 20110810
  5. TESTOSTERONE [Concomitant]
     Indication: PRODUCT USED FOR UNKNOWN INDICATION
     Dates: start: 20110901
  6. VICODIN [Concomitant]
     Indication: PRODUCT USED FOR UNKNOWN INDICATION
     Dates: start: 20110715
  7. HUMIRA [Suspect]
     Indication: PRODUCT USED FOR UNKNOWN INDICATION
     Route: 058
  8. LOMOTIL [Concomitant]
     Indication: PRODUCT USED FOR UNKNOWN INDICATION
     Dates: start: 20110621
  9. MULTI-VITAMIN [Concomitant]
     Indication: PRODUCT USED FOR UNKNOWN INDICATION
     Dates: start: 20000101
  10. PROTONIX [Concomitant]
     Indication: PRODUCT USED FOR UNKNOWN INDICATION
     Dates: start: 20111120
  11. VEDOLIZUMAB [Suspect]
     Indication: CROHN'S DISEASE
     Route: 042
     Dates: start: 20110909, end: 20110909
  12. METOPROLOL SUCCINATE [Concomitant]
     Indication: PRODUCT USED FOR UNKNOWN INDICATION
     Dates: start: 20050101
  13. ASPIRIN [Concomitant]
     Indication: PRODUCT USED FOR UNKNOWN INDICATION
     Dates: start: 20050101
  14. CALCIUM + VITAMIN D [Concomitant]
     Indication: PRODUCT USED FOR UNKNOWN INDICATION
     Dates: start: 20110607

REACTIONS (17)
  - OSTEOSCLEROSIS [None]
  - ADVERSE DRUG REACTION [None]
  - WEIGHT DECREASED [None]
  - THYROID MASS [None]
  - QRS AXIS ABNORMAL [None]
  - NEOPLASM MALIGNANT [None]
  - PNEUMONIA [None]
  - DYSPNOEA EXERTIONAL [None]
  - BUNDLE BRANCH BLOCK RIGHT [None]
  - DECREASED APPETITE [None]
  - BUNDLE BRANCH BLOCK LEFT [None]
  - RESPIRATORY TRACT INFLAMMATION [None]
  - PRODUCTIVE COUGH [None]
  - ALVEOLITIS ALLERGIC [None]
  - SPUTUM DISCOLOURED [None]
  - OXYGEN SATURATION DECREASED [None]
  - TUBERCULOSIS [None]
